FAERS Safety Report 12956944 (Version 2)
Quarter: 2016Q4

REPORT INFORMATION
  Report Type: Spontaneous
  Country: US (occurrence: US)
  Receive Date: 20161118
  Receipt Date: 20161122
  Transmission Date: 20170207
  Serious: No
  Sender: FDA-Public Use
  Company Number: US-ELI_LILLY_AND_COMPANY-US201607010352

PATIENT
  Age: 62 Year
  Sex: Female

DRUGS (1)
  1. CYMBALTA [Suspect]
     Active Substance: DULOXETINE HYDROCHLORIDE
     Indication: PRODUCT USED FOR UNKNOWN INDICATION
     Dosage: 60 MG, QD
     Route: 048

REACTIONS (11)
  - Sensory disturbance [Unknown]
  - Insomnia [Unknown]
  - Tinnitus [Unknown]
  - Drug withdrawal syndrome [Unknown]
  - Vertigo [Unknown]
  - Anxiety [Unknown]
  - Hyperhidrosis [Unknown]
  - Tremor [Unknown]
  - Paraesthesia [Unknown]
  - Dizziness [Unknown]
  - Headache [Unknown]

NARRATIVE: CASE EVENT DATE: 20161118
